FAERS Safety Report 23283545 (Version 3)
Quarter: 2024Q3

REPORT INFORMATION
  Report Type: Spontaneous
  Country: JP (occurrence: JP)
  Receive Date: 20231211
  Receipt Date: 20240712
  Transmission Date: 20241016
  Serious: Yes (Death, Other)
  Sender: BRISTOL MYERS SQUIBB
  Company Number: JP-BRISTOL-MYERS SQUIBB COMPANY-2023-176412

PATIENT

DRUGS (1)
  1. REVLIMID [Suspect]
     Active Substance: LENALIDOMIDE
     Indication: Product used for unknown indication
     Dosage: DOSE : UNAVAILABLE;     FREQ : UNAVAILABLE
     Route: 048

REACTIONS (1)
  - Death [Fatal]
